FAERS Safety Report 12769964 (Version 1)
Quarter: 2016Q3

REPORT INFORMATION
  Report Type: Report from Study
  Country: US (occurrence: US)
  Receive Date: 20160922
  Receipt Date: 20160922
  Transmission Date: 20161109
  Serious: No
  Sender: FDA-Public Use
  Company Number: US-AMGEN-USASL2016127956

PATIENT
  Age: 29 Year

DRUGS (1)
  1. ENBREL [Suspect]
     Active Substance: ETANERCEPT
     Indication: ANKYLOSING SPONDYLITIS
     Dosage: 50 MG, QWK
     Route: 065

REACTIONS (8)
  - Pruritus [Unknown]
  - Injection site warmth [Recovering/Resolving]
  - Musculoskeletal pain [Recovered/Resolved]
  - Pain [Unknown]
  - Injection site urticaria [Recovering/Resolving]
  - Injection site erythema [Recovering/Resolving]
  - Chest discomfort [Unknown]
  - Injection site bruising [Recovering/Resolving]
